FAERS Safety Report 7072433-9 (Version None)
Quarter: 2010Q4

REPORT INFORMATION
  Report Type: 
  Country: None (occurrence: None)
  Receive Date: 20101029
  Receipt Date: 20100126
  Transmission Date: 20110411
  Serious: No
  Sender: FDA-Public Use
  Company Number: A0841482A

PATIENT
  Age: 82 Year
  Sex: Female

DRUGS (13)
  1. ADVAIR DISKUS 100/50 [Suspect]
     Dosage: 1PUFF TWICE PER DAY
     Route: 055
     Dates: start: 20100101
  2. FISH OIL [Concomitant]
  3. VITAMIN-MINERAL COMPOUND TAB [Concomitant]
  4. XALATAN [Concomitant]
  5. BETOPTIC S [Concomitant]
  6. PRESSAT [Concomitant]
  7. KLOR-CON [Concomitant]
  8. UNKNOWN MEDICATION [Concomitant]
  9. LISINOPRIL [Concomitant]
  10. FUROSEMIDE [Concomitant]
  11. SPIRIVA [Concomitant]
  12. ALBUTEROL SULFATE [Concomitant]
  13. ONE A DAY VITAMIN [Concomitant]

REACTIONS (5)
  - BONE PAIN [None]
  - DYSPHONIA [None]
  - INTRAOCULAR PRESSURE INCREASED [None]
  - TREMOR [None]
  - VISION BLURRED [None]
